FAERS Safety Report 16023126 (Version 1)
Quarter: 2019Q1

REPORT INFORMATION
  Report Type: Spontaneous
  Country: US (occurrence: US)
  Receive Date: 20190301
  Receipt Date: 20190301
  Transmission Date: 20190418
  Serious: No
  Sender: FDA-Public Use
  Company Number: US-MERZ NORTH AMERICA, INC.-19MRZ-00089

PATIENT

DRUGS (1)
  1. XEOMIN [Suspect]
     Active Substance: INCOBOTULINUMTOXINA
     Indication: PRODUCT USED FOR UNKNOWN INDICATION
     Dosage: LOT # 705706 AND INJECTION IN DECEMBER 2018 WAS THE SAME FOR 10 PATIENTS
     Dates: start: 201812, end: 201812

REACTIONS (1)
  - Drug ineffective [Unknown]
